APPROVED DRUG PRODUCT: ROSUVASTATIN CALCIUM
Active Ingredient: ROSUVASTATIN CALCIUM
Strength: EQ 10MG BASE
Dosage Form/Route: TABLET;ORAL
Application: A206465 | Product #002 | TE Code: AB
Applicant: ALKEM LABORATORIES LTD
Approved: Mar 21, 2017 | RLD: No | RS: No | Type: RX